FAERS Safety Report 5735615-1 (Version None)
Quarter: 2008Q2

REPORT INFORMATION
  Report Type: 
  Country: None (occurrence: None)
  Receive Date: 20080512
  Receipt Date: 20080430
  Transmission Date: 20081010
  Serious: Yes (Death, Hospitalization)
  Sender: FDA-Public Use
  Company Number: BR-PFIZER INC-2008036191

PATIENT
  Sex: Male
  Weight: 56 kg

DRUGS (11)
  1. MARAVIROC [Suspect]
     Indication: HIV INFECTION
     Route: 048
     Dates: start: 20080325, end: 20080421
  2. ZIDOVUDINE [Suspect]
     Route: 048
     Dates: start: 20080325, end: 20080421
  3. DARUNAVIR [Concomitant]
     Route: 048
     Dates: start: 20080325, end: 20080421
  4. RITONAVIR [Concomitant]
     Route: 048
     Dates: start: 20080325, end: 20080421
  5. TENOFOVIR [Concomitant]
     Route: 048
     Dates: start: 20080325, end: 20080421
  6. LAMIVUDINE [Concomitant]
     Route: 048
     Dates: start: 20080325, end: 20080421
  7. FOLINIC ACID [Concomitant]
     Route: 048
  8. DAPSONE [Concomitant]
     Route: 048
  9. PYRIMETHAMINE TAB [Concomitant]
     Route: 048
  10. LAMOTRIGINE [Concomitant]
     Route: 048
  11. CLOBAZAM [Concomitant]
     Route: 048

REACTIONS (7)
  - ABDOMINAL PAIN [None]
  - AMNESIA [None]
  - DIARRHOEA [None]
  - FLATULENCE [None]
  - GAIT DISTURBANCE [None]
  - PANCYTOPENIA [None]
  - PYREXIA [None]
